FAERS Safety Report 7568921-9 (Version None)
Quarter: 2011Q2

REPORT INFORMATION
  Report Type: 
  Country: None (occurrence: None)
  Receive Date: 20110623
  Receipt Date: 20110617
  Transmission Date: 20111010
  Serious: Yes (Other)
  Sender: FDA-Public Use
  Company Number: IT-PFIZER INC-2011121777

PATIENT
  Age: 56 Year
  Sex: Male

DRUGS (3)
  1. CYTARABINE [Suspect]
     Indication: ACUTE MYELOID LEUKAEMIA
     Dosage: 400 MG, 1X/DAY
     Route: 042
     Dates: start: 20110507, end: 20110513
  2. ETOPOSIDE [Suspect]
     Indication: ACUTE MYELOID LEUKAEMIA
     Dosage: 200 MG, 1X/DAY
     Route: 042
     Dates: start: 20110507, end: 20110511
  3. IDARUBICIN HYDROCHLORIDE [Suspect]
     Indication: ACUTE MYELOID LEUKAEMIA
     Dosage: 24 MG, 1X/DAY
     Route: 042
     Dates: start: 20110507, end: 20110509

REACTIONS (2)
  - CUTANEOUS VASCULITIS [None]
  - STOMATITIS [None]
